FAERS Safety Report 8523021-6 (Version None)
Quarter: 2012Q3

REPORT INFORMATION
  Report Type: 
  Country: None (occurrence: None)
  Receive Date: 20120720
  Receipt Date: 20120712
  Transmission Date: 20120928
  Serious: Yes (Hospitalization, Other)
  Sender: FDA-Public Use
  Company Number: BR-BRISTOL-MYERS SQUIBB COMPANY-16504474

PATIENT
  Age: 57 Year
  Sex: Female
  Weight: 67 kg

DRUGS (8)
  1. ALPRAZOLAM [Concomitant]
     Dosage: 1 DF = 1/2 TAB BEFORE SLEEPING
     Route: 048
  2. INDAPAMIDE [Concomitant]
     Indication: HYPERTENSION
  3. IRBESARTAN AND HYDROCHLOROTHIAZIDE [Suspect]
     Indication: HYPERTENSION
     Dosage: APROZIDE 150MG/12.5MG TABS
     Route: 048
  4. METOPROLOL SUCCINATE [Concomitant]
     Indication: HEART RATE INCREASED
     Dosage: 1DF: 2*QD
     Route: 048
  5. FLUOXETINE HCL [Concomitant]
  6. CLOPIDOGREL [Concomitant]
     Indication: PROPHYLAXIS
     Dosage: 1*QD
     Route: 048
  7. AMIODARONE HYDROCHLORIDE [Concomitant]
     Indication: ARRHYTHMIA
     Route: 048
  8. METFORMIN HYDROCHLORIDE [Concomitant]
     Indication: BLOOD GLUCOSE
     Route: 048

REACTIONS (3)
  - TYPE 2 DIABETES MELLITUS [None]
  - THYROID DISORDER [None]
  - AORTIC VALVE STENOSIS [None]
